FAERS Safety Report 10101830 (Version 3)
Quarter: 2014Q2

REPORT INFORMATION
  Report Type: Spontaneous
  Country: US (occurrence: US)
  Receive Date: 20140424
  Receipt Date: 20140624
  Transmission Date: 20141212
  Serious: Yes (Hospitalization, Other)
  Sender: FDA-Public Use
  Company Number: US-INCYTE CORPORATION-2014IN001072

PATIENT
  Age: 46 Year
  Sex: Female

DRUGS (2)
  1. JAKAFI [Suspect]
     Indication: MYELOFIBROSIS
     Dosage: 15 MG, BID
     Route: 048
     Dates: start: 20140414
  2. PREDNISONE [Concomitant]

REACTIONS (3)
  - Platelet count increased [Unknown]
  - Platelet count decreased [Unknown]
  - White blood cell count increased [Unknown]
